FAERS Safety Report 18443282 (Version 3)
Quarter: 2020Q4

REPORT INFORMATION
  Report Type: Spontaneous
  Country: DE (occurrence: DE)
  Receive Date: 20201029
  Receipt Date: 20201203
  Transmission Date: 20210114
  Serious: Yes (Hospitalization)
  Sender: FDA-Public Use
  Company Number: DE-TEVA-2020-DE-1840813

PATIENT
  Age: 44 Year
  Sex: Female

DRUGS (4)
  1. PANTOZOL 40 MG [Concomitant]
     Dosage: 1-0-0-0; AS REQUIRED
  2. COPAXONE [Suspect]
     Active Substance: GLATIRAMER ACETATE
     Indication: MULTIPLE SCLEROSIS
     Route: 058
     Dates: start: 20200806, end: 20201015
  3. L-THYROXIN 150 MCG [Concomitant]
     Dosage: 150 MICROGRAM DAILY; 1-0-0-0
  4. CIPROFLOXACIN. [Concomitant]
     Active Substance: CIPROFLOXACIN
     Dosage: 1-0-1
     Dates: end: 20201018

REACTIONS (2)
  - Liver function test increased [Unknown]
  - Abdominal pain upper [Recovered/Resolved]
